FAERS Safety Report 9159435 (Version 1)
Quarter: 2013Q1

REPORT INFORMATION
  Report Type: Spontaneous
  Country: JP (occurrence: JP)
  Receive Date: 20130313
  Receipt Date: 20130313
  Transmission Date: 20140127
  Serious: Yes (Other)
  Sender: FDA-Public Use
  Company Number: PHHY2012JP115866

PATIENT
  Age: 52 Year
  Sex: Male

DRUGS (12)
  1. TASIGNA [Suspect]
     Indication: CHRONIC MYELOID LEUKAEMIA
     Dosage: 800 MG, DAILY
     Route: 048
     Dates: start: 201010
  2. TASIGNA [Suspect]
     Dosage: 400 MG, DAILY
     Route: 048
  3. OLMESARTAN MEDOXOMIL [Concomitant]
     Route: 048
  4. BISOPROLOL FUMARATE [Concomitant]
     Route: 048
  5. TORASEMIDE [Concomitant]
     Route: 048
  6. AMLODIPINE [Concomitant]
     Route: 048
  7. FUROSEMIDE [Concomitant]
     Route: 048
  8. FAMOTIDINE [Concomitant]
     Route: 048
  9. FLAVINE ADENINE DINUCLEOTIDE DISODIUM [Concomitant]
  10. ASPIRIN [Concomitant]
  11. VERAPAMIL HYDROCHLORIDE [Concomitant]
  12. ISOSORBIDE DINITRATE [Concomitant]

REACTIONS (3)
  - Cardiac failure [Recovered/Resolved]
  - Palpitations [Recovered/Resolved]
  - Dyspnoea [Recovered/Resolved]
